FAERS Safety Report 8275419-1 (Version None)
Quarter: 2012Q2

REPORT INFORMATION
  Report Type: 
  Country: None (occurrence: None)
  Receive Date: 20120411
  Receipt Date: 20120404
  Transmission Date: 20120825
  Serious: Yes (Hospitalization)
  Sender: FDA-Public Use
  Company Number: JP-B.I. PHARMACEUTICALS,INC./RIDGEFIELD-2012-BP-06400NB

PATIENT
  Age: 87 Year
  Sex: Female

DRUGS (2)
  1. CILOSTAZOL [Suspect]
     Dosage: 200 MG
     Route: 048
     Dates: start: 20120326, end: 20120404
  2. TRAZENTA [Suspect]
     Indication: DIABETES MELLITUS
     Dosage: 5 MG
     Route: 048
     Dates: start: 20120330, end: 20120404

REACTIONS (1)
  - CARDIAC FAILURE [None]
